FAERS Safety Report 16449280 (Version 1)
Quarter: 2019Q2

REPORT INFORMATION
  Report Type: Report from Study
  Country: ZA (occurrence: ZA)
  Receive Date: 20190619
  Receipt Date: 20190619
  Transmission Date: 20190711
  Serious: Yes (Death, Hospitalization, Other)
  Sender: FDA-Public Use
  Company Number: ZA-AMGEN-ZAFSL2019094224

PATIENT
  Age: 80 Year
  Sex: Female

DRUGS (1)
  1. ARANESP [Suspect]
     Active Substance: DARBEPOETIN ALFA
     Indication: CHRONIC KIDNEY DISEASE
     Dosage: 100 MICROGRAM, Q2WK
     Route: 058
     Dates: start: 20140601, end: 20190606

REACTIONS (2)
  - Coma [Fatal]
  - Fall [Fatal]

NARRATIVE: CASE EVENT DATE: 201905
